FAERS Safety Report 16234161 (Version 1)
Quarter: 2019Q2

REPORT INFORMATION
  Report Type: Spontaneous
  Country: US (occurrence: US)
  Receive Date: 20190321
  Receipt Date: 20190321
  Transmission Date: 20190711
  Serious: No
  Sender: FDA-Public Use
  Company Number: None

PATIENT
  Age: 60 Year
  Sex: Male

DRUGS (4)
  1. GLEOSTINE [Suspect]
     Active Substance: LOMUSTINE
     Dates: start: 20190222
  2. LEVETIRACETAM. [Concomitant]
     Active Substance: LEVETIRACETAM
  3. NEUPOGEN [Concomitant]
     Active Substance: FILGRASTIM
  4. ONDANSETRON [Concomitant]
     Active Substance: ONDANSETRON

REACTIONS (1)
  - Off label use [None]

NARRATIVE: CASE EVENT DATE: 20190222
